FAERS Safety Report 19614898 (Version 1)
Quarter: 2021Q3

REPORT INFORMATION
  Report Type: Spontaneous
  Country: IL (occurrence: IL)
  Receive Date: 20210727
  Receipt Date: 20210727
  Transmission Date: 20211014
  Serious: Yes (Hospitalization)
  Sender: FDA-Public Use
  Company Number: IL-REGENERON PHARMACEUTICALS, INC.-2021-71043

PATIENT

DRUGS (5)
  1. PLAVIX [Concomitant]
     Active Substance: CLOPIDOGREL BISULFATE
     Dosage: UNK
  2. PRALUENT [Suspect]
     Active Substance: ALIROCUMAB
     Indication: PRODUCT USED FOR UNKNOWN INDICATION
     Dosage: UNK
     Route: 058
  3. CARDILOC [Concomitant]
     Active Substance: BISOPROLOL FUMARATE
     Dosage: UNK
  4. LOSARDEX [Concomitant]
     Active Substance: LOSARTAN POTASSIUM
  5. FORTEO [Concomitant]
     Active Substance: TERIPARATIDE
     Dosage: UNK

REACTIONS (2)
  - Hip arthroplasty [Unknown]
  - Procedural pain [Unknown]
